FAERS Safety Report 20005302 (Version 2)
Quarter: 2022Q1

REPORT INFORMATION
  Report Type: Spontaneous
  Country: CN (occurrence: CN)
  Receive Date: 20211027
  Receipt Date: 20220302
  Transmission Date: 20220423
  Serious: Yes (Other)
  Sender: FDA-Public Use
  Company Number: CN-UCBSA-2021049674

PATIENT
  Age: 78 Year
  Sex: Male
  Weight: 57 kg

DRUGS (15)
  1. CETIRIZINE HYDROCHLORIDE [Suspect]
     Active Substance: CETIRIZINE HYDROCHLORIDE
     Indication: Hypersensitivity
     Dosage: 10 MILLIGRAM, ONCE DAILY (QD), EVERY NIGHT
     Route: 048
     Dates: start: 20211002
  2. PIPERACILLIN SODIUM\SULBACTAM SODIUM [Suspect]
     Active Substance: PIPERACILLIN SODIUM\SULBACTAM SODIUM
     Indication: Pneumonia bacterial
     Dosage: 2.5 GRAM, 2X/DAY (BID)
     Route: 041
     Dates: start: 20210920, end: 20210926
  3. CEFOPERAZONE SODIUM\SULBACTAM SODIUM [Suspect]
     Active Substance: CEFOPERAZONE SODIUM\SULBACTAM SODIUM
     Indication: Pneumonia bacterial
     Dosage: 1.5 GRAM, 2X/DAY (BID)
     Route: 041
     Dates: start: 20211001, end: 20211003
  4. CEFOTAXIME SODIUM [Concomitant]
     Active Substance: CEFOTAXIME SODIUM
     Indication: Pneumonia bacterial
     Dosage: 1.500 GRAM, 2X/DAY (BID)
     Route: 041
     Dates: start: 20210926, end: 20210929
  5. ESOMEPRAZOLE SODIUM [Concomitant]
     Active Substance: ESOMEPRAZOLE SODIUM
     Indication: Gastrooesophageal reflux disease
     Dosage: 40.000 MILLIGRAM, ONCE DAILY (QD)
     Route: 048
     Dates: start: 20210920, end: 20211011
  6. ATORVASTATIN CALCIUM [Concomitant]
     Active Substance: ATORVASTATIN CALCIUM
     Indication: Carotid arteriosclerosis
     Dosage: 10.000 MILLIGRAM, ONCE DAILY (QD)
     Route: 048
     Dates: start: 20210920, end: 20211003
  7. FEBUXOSTAT [Concomitant]
     Active Substance: FEBUXOSTAT
     Indication: Hyperuricaemia
     Dosage: 40.000 MILLIGRAM, ONCE DAILY (QD)
     Route: 048
     Dates: start: 20210920, end: 20211003
  8. ISOSORBIDE MONONITRATE [Concomitant]
     Active Substance: ISOSORBIDE MONONITRATE
     Indication: Hypertension
     Dosage: 60.000 MILLIGRAM, ONCE DAILY (QD)
     Route: 048
     Dates: start: 20210920, end: 20211003
  9. ITOPRIDE HYDROCHLORIDE [Concomitant]
     Active Substance: ITOPRIDE HYDROCHLORIDE
     Indication: Gastrooesophageal reflux disease
     Dosage: 50 MILLIGRAM, 3X/DAY (TID)
     Route: 048
     Dates: start: 20210920, end: 20211011
  10. AMBROXOL HYDROCHLORIDE [Concomitant]
     Active Substance: AMBROXOL HYDROCHLORIDE
     Indication: Pneumonia bacterial
     Dosage: 30.000 MILLIGRAM, 3X/DAY (TID)
     Route: 048
     Dates: start: 20210920, end: 20211003
  11. LORATADINE [Concomitant]
     Active Substance: LORATADINE
     Indication: Dermatitis allergic
     Dosage: 10 MILLIGRAM, ONCE DAILY (QD)
     Route: 048
     Dates: start: 20210926
  12. KETOTIFEN [Concomitant]
     Active Substance: KETOTIFEN
     Indication: Dermatitis allergic
     Dosage: 1 MILLIGRAM, ONCE DAILY (QD) EVERY NIGHT
     Route: 048
     Dates: start: 20210926
  13. VITAMIN C [Concomitant]
     Active Substance: ASCORBIC ACID
     Indication: Dermatitis allergic
     Dosage: 3 GRAM, ONCE DAILY (QD)
     Route: 041
     Dates: start: 20210926
  14. CALCIUM GLUCONATE [Concomitant]
     Active Substance: CALCIUM GLUCONATE
     Indication: Dermatitis allergic
     Dosage: 2 GRAM, ONCE DAILY (QD)
     Route: 041
     Dates: start: 20210926
  15. COMPOUND CAMPHOR [Concomitant]
     Indication: Pruritus
     Dosage: UNK
     Route: 061

REACTIONS (9)
  - Capillary fragility [Not Recovered/Not Resolved]
  - Dandruff [Unknown]
  - Papule [Recovering/Resolving]
  - Skin exfoliation [Recovering/Resolving]
  - Skin lesion [Recovering/Resolving]
  - Rash [Recovering/Resolving]
  - Swelling face [Recovering/Resolving]
  - Peripheral swelling [Recovering/Resolving]
  - Pruritus [Recovering/Resolving]

NARRATIVE: CASE EVENT DATE: 20211002
